FAERS Safety Report 22040136 (Version 6)
Quarter: 2023Q2

REPORT INFORMATION
  Report Type: Report from Study
  Country: EC (occurrence: EC)
  Receive Date: 20230227
  Receipt Date: 20230601
  Transmission Date: 20230722
  Serious: Yes (Life-Threatening, Hospitalization, Other)
  Sender: FDA-Public Use
  Company Number: EC-002147023-NVSC2023EC044263

PATIENT
  Age: 41 Year
  Sex: Female

DRUGS (1)
  1. KISQALI [Suspect]
     Active Substance: RIBOCICLIB
     Indication: Breast cancer
     Dosage: 600 MG, QD
     Route: 048
     Dates: start: 20230212, end: 20230304

REACTIONS (6)
  - Renal failure [Unknown]
  - Pneumonia [Not Recovered/Not Resolved]
  - Oxygen saturation decreased [Recovering/Resolving]
  - Depressed mood [Unknown]
  - Asthenia [Unknown]
  - Anaemia [Unknown]

NARRATIVE: CASE EVENT DATE: 20230219
